FAERS Safety Report 8183009-4 (Version None)
Quarter: 2012Q1

REPORT INFORMATION
  Report Type: 
  Country: None (occurrence: None)
  Receive Date: 20120305
  Receipt Date: 20111109
  Transmission Date: 20120608
  Serious: No
  Sender: FDA-Public Use
  Company Number: US-BRISTOL-MYERS SQUIBB COMPANY-16222499

PATIENT
  Age: 31 Year
  Sex: Male

DRUGS (2)
  1. KOMBIGLYZE XR [Suspect]
  2. METFORMIN HCL [Concomitant]

REACTIONS (3)
  - DIZZINESS [None]
  - INSOMNIA [None]
  - GINGIVAL SWELLING [None]
